FAERS Safety Report 13238938 (Version 1)
Quarter: 2017Q1

REPORT INFORMATION
  Report Type: Spontaneous
  Country: US (occurrence: US)
  Receive Date: 20170216
  Receipt Date: 20170216
  Transmission Date: 20170428
  Serious: No
  Sender: FDA-Public Use
  Company Number: US-VERTEX PHARMACEUTICALS-2017-000764

PATIENT
  Age: 7 Year
  Sex: Male

DRUGS (2)
  1. ORKAMBI [Suspect]
     Active Substance: IVACAFTOR\LUMACAFTOR
     Indication: CYSTIC FIBROSIS
     Dosage: 100MG/125MG, BID
     Route: 048
     Dates: start: 20170118
  2. KITABIS PAK [Suspect]
     Active Substance: TOBRAMYCIN
     Indication: CYSTIC FIBROSIS
     Dosage: 300MG/5ML, BID
     Route: 055
     Dates: start: 20121212

REACTIONS (1)
  - Abnormal faeces [Recovered/Resolved]

NARRATIVE: CASE EVENT DATE: 201701
